FAERS Safety Report 24383346 (Version 1)
Quarter: 2024Q4

REPORT INFORMATION
  Report Type: Spontaneous
  Country: FR (occurrence: FR)
  Receive Date: 20241001
  Receipt Date: 20241001
  Transmission Date: 20250115
  Serious: Yes (Other)
  Sender: SANOFI AVENTIS
  Company Number: None

PATIENT
  Age: 68 Year
  Sex: Female

DRUGS (3)
  1. ZOLPIDEM TARTRATE [Suspect]
     Active Substance: ZOLPIDEM TARTRATE
     Indication: Product used for unknown indication
     Dosage: UNK
     Route: 048
  2. BROMAZEPAM [Suspect]
     Active Substance: BROMAZEPAM
     Indication: Product used for unknown indication
     Dosage: UNK
     Route: 048
  3. ACETAMINOPHEN\CAFFEINE\CODEINE [Suspect]
     Active Substance: ACETAMINOPHEN\CAFFEINE\CODEINE
     Indication: Neck pain
     Dosage: UNK
     Route: 048
     Dates: end: 202407

REACTIONS (1)
  - Affective disorder [Unknown]

NARRATIVE: CASE EVENT DATE: 20240101
